FAERS Safety Report 9444399 (Version 2)
Quarter: 2013Q4

REPORT INFORMATION
  Report Type: Report from Study
  Country: JP (occurrence: JP)
  Receive Date: 20130807
  Receipt Date: 20131029
  Transmission Date: 20140711
  Serious: Yes (Death, Life-Threatening)
  Sender: FDA-Public Use
  Company Number: JP-AMGEN-JPNCT2013055216

PATIENT
  Age: 82 Year
  Sex: Male
  Weight: 50 kg

DRUGS (18)
  1. DARBEPOETIN ALFA [Suspect]
     Indication: NEPHROGENIC ANAEMIA
     Dosage: 120 MUG, QD
     Route: 058
     Dates: start: 20110524, end: 20130206
  2. ADALAT [Concomitant]
     Dosage: UNK
     Route: 048
  3. NU-LOTAN [Concomitant]
     Dosage: UNK
     Route: 048
  4. FUROSEMIDE [Concomitant]
     Dosage: UNK
     Route: 048
  5. DAITALIC [Concomitant]
     Dosage: UNK
     Route: 048
  6. ALDACTONE A [Concomitant]
     Dosage: UNK
     Route: 048
  7. BASEN [Concomitant]
     Indication: DIABETIC NEPHROPATHY
     Dosage: UNK
     Route: 048
  8. LANTUS [Concomitant]
     Indication: DIABETIC NEPHROPATHY
     Dosage: UNK
     Route: 065
  9. FERRUM [Concomitant]
     Dosage: UNK
     Route: 048
  10. SEIBULE [Concomitant]
     Indication: DIABETIC NEPHROPATHY
     Dosage: UNK
     Route: 048
  11. CALBLOCK [Concomitant]
     Dosage: UNK
     Route: 048
  12. CRESTOR [Concomitant]
     Dosage: UNK
     Route: 048
  13. OLMETEC [Concomitant]
     Dosage: UNK
     Route: 048
  14. THYRADIN [Concomitant]
     Dosage: UNK
     Route: 048
  15. FEBURIC [Concomitant]
     Dosage: UNK
     Route: 048
  16. OXYCONTIN [Concomitant]
     Dosage: UNK
     Route: 048
  17. DOXAZOSIN [Concomitant]
     Dosage: UNK
     Route: 048
  18. NOVAMIN [Concomitant]
     Dosage: UNK
     Route: 048

REACTIONS (3)
  - Metastases to spine [Fatal]
  - Decreased appetite [Not Recovered/Not Resolved]
  - Hyperuricaemia [Not Recovered/Not Resolved]
